FAERS Safety Report 10192913 (Version 2)
Quarter: 2014Q2

REPORT INFORMATION
  Report Type: Report from Study
  Country: US (occurrence: US)
  Receive Date: 20140523
  Receipt Date: 20140523
  Transmission Date: 20141212
  Serious: Yes (Other)
  Sender: FDA-Public Use
  Company Number: US-ABBVIE-14P-163-1187658-00

PATIENT
  Sex: Male
  Weight: 87.17 kg

DRUGS (8)
  1. HUMIRA [Suspect]
     Indication: CROHN^S DISEASE
     Dates: start: 201101, end: 201401
  2. HUMIRA [Suspect]
     Dates: start: 20140102
  3. ASACOL [Concomitant]
     Indication: CROHN^S DISEASE
     Route: 048
  4. 6MP [Concomitant]
     Indication: CROHN^S DISEASE
     Route: 048
  5. VIT D [Concomitant]
     Indication: PRODUCT USED FOR UNKNOWN INDICATION
  6. MERCAPTOPURINE [Concomitant]
     Indication: PRODUCT USED FOR UNKNOWN INDICATION
  7. OMEPRAZOLE [Concomitant]
     Indication: PRODUCT USED FOR UNKNOWN INDICATION
     Dosage: 20 MG CPDR
  8. PURINETHOL [Concomitant]
     Indication: PRODUCT USED FOR UNKNOWN INDICATION

REACTIONS (12)
  - Thyroid cancer [Unknown]
  - Thyroid neoplasm [Recovered/Resolved]
  - Crohn^s disease [Unknown]
  - Intestinal obstruction [Unknown]
  - Abdominal pain [Unknown]
  - Diarrhoea [Unknown]
  - Change of bowel habit [Unknown]
  - Pseudopolyp [Unknown]
  - Intestinal mass [Unknown]
  - Intestinal anastomosis complication [Unknown]
  - Hepatic enzyme increased [Unknown]
  - Gastrooesophageal reflux disease [Unknown]
